FAERS Safety Report 20994401 (Version 2)
Quarter: 2022Q2

REPORT INFORMATION
  Report Type: Spontaneous
  Country: FR (occurrence: FR)
  Receive Date: 20220622
  Receipt Date: 20220629
  Transmission Date: 20220720
  Serious: Yes (Death, Hospitalization, Other)
  Sender: FDA-Public Use
  Company Number: FR-SA-SAC20220428000301

PATIENT
  Age: 87 Year
  Sex: Female
  Weight: 59 kg

DRUGS (17)
  1. ENOXAPARIN SODIUM [Suspect]
     Active Substance: ENOXAPARIN SODIUM
     Indication: Atrial fibrillation
     Dosage: 4000 INTERNATIONAL UNIT, QD, 4,000 IU (40 MG) IN 0.4 ML
     Route: 058
     Dates: start: 20220222, end: 20220302
  2. FUROSEMIDE [Suspect]
     Active Substance: FUROSEMIDE
     Indication: Product used for unknown indication
     Dosage: UNK
     Route: 065
  3. SKENAN [Suspect]
     Active Substance: MORPHINE SULFATE
     Indication: Product used for unknown indication
     Dosage: UNK, BID (12 HRS), 1/0/1
     Route: 065
  4. ELIQUIS [Suspect]
     Active Substance: APIXABAN
     Indication: Product used for unknown indication
     Dosage: UNK
     Route: 065
  5. FUROSEMIDE [Suspect]
     Active Substance: FUROSEMIDE
     Indication: Product used for unknown indication
     Dosage: UNK
     Route: 065
  6. ABSTRAL [Concomitant]
     Active Substance: FENTANYL CITRATE
     Dosage: 1 DOSAGE FORM, QD, 1 TABLET BEFORE DRESSING IN THE MORNING
     Route: 065
  7. TROSPIUM CHLORIDE [Concomitant]
     Active Substance: TROSPIUM CHLORIDE
     Dosage: 20 MILLIGRAM, BID (12 HOURS)
     Route: 065
  8. TRANEXAMIC ACID [Concomitant]
     Active Substance: TRANEXAMIC ACID
     Dosage: UNK
     Route: 065
  9. BACTRIM [Concomitant]
     Active Substance: SULFAMETHOXAZOLE\TRIMETHOPRIM
     Dosage: 800 MILLIGRAM, QD, 1/0/0
     Route: 065
     Dates: start: 20210912
  10. SYMBICORT [Concomitant]
     Active Substance: BUDESONIDE\FORMOTEROL FUMARATE DIHYDRATE
     Dosage: UNK, BID (12 HRS), 400/12UG 1/0/1
     Route: 065
  11. NORMACOL [Concomitant]
     Active Substance: HERBALS\KARAYA GUM
     Dosage: UNK
     Route: 065
  12. MORPHINE SULFATE [Concomitant]
     Active Substance: MORPHINE SULFATE
     Indication: Pain
     Dosage: 1 DOSAGE FORM, 1 CAPSULE 4/D
     Route: 065
  13. FOLIC ACID [Concomitant]
     Active Substance: FOLIC ACID
     Dosage: 5 MILLIGRAM, QD, 0/1/0
     Route: 065
  14. ALDACTONE [Concomitant]
     Active Substance: SPIRONOLACTONE
     Dosage: UNK, HALF TABLET
     Route: 065
  15. LOVENOX [Concomitant]
     Active Substance: ENOXAPARIN SODIUM
     Dosage: UNK
     Route: 065
  16. DIGOXIN [Concomitant]
     Active Substance: DIGOXIN
     Dosage: UNK, (1/0/0 EVERY 2 DAYS)
     Route: 065
  17. ECONAZOLE [Concomitant]
     Active Substance: ECONAZOLE
     Dosage: UNK, BID (12 HRS), 1/0/1
     Route: 065

REACTIONS (7)
  - Blister [Fatal]
  - Shock haemorrhagic [Fatal]
  - Hypotension [Fatal]
  - Nausea [Fatal]
  - Injection site haematoma [Fatal]
  - Rash erythematous [Fatal]
  - Vomiting [Fatal]

NARRATIVE: CASE EVENT DATE: 20220302
